FAERS Safety Report 23218799 (Version 2)
Quarter: 2023Q4

REPORT INFORMATION
  Report Type: Other
  Country: DE (occurrence: DE)
  Receive Date: 20231122
  Receipt Date: 20231212
  Transmission Date: 20240110
  Serious: Yes (Death, Hospitalization, Other)
  Sender: FDA-Public Use
  Company Number: DE-KRKA-DE2023K06422STU

PATIENT

DRUGS (9)
  1. TAFASITAMAB [Suspect]
     Active Substance: TAFASITAMAB
     Indication: Diffuse large B-cell lymphoma
     Dosage: 600 MG, PER DAY ON CYCLE DAYS 1-15 OF A 21 DAYS LONG CYCLE
     Route: 065
     Dates: start: 20221026, end: 20230628
  2. TAFASITAMAB [Suspect]
     Active Substance: TAFASITAMAB
     Dosage: 600 MG, PER DAY ON CYCLE DAYS 1-15 OF A 21 DAYS LONG CYCLE
     Route: 065
     Dates: start: 20231025, end: 20231110
  3. LENALIDOMIDE [Suspect]
     Active Substance: LENALIDOMIDE
     Indication: Diffuse large B-cell lymphoma
     Dosage: 15MG PER DAY ON CYCLE DAYS 1 TO 21 OF A 21 DAYS LONG CYCLE
     Route: 048
     Dates: start: 20221025, end: 20231025
  4. LENALIDOMIDE [Suspect]
     Active Substance: LENALIDOMIDE
     Dosage: 10 PER DAY ON CYCLE DAYS 1 TO 21 OF A 21 DAYS LONG CYCLE
     Route: 048
     Dates: start: 20231026, end: 20231120
  5. PREDNISOLONE [Suspect]
     Active Substance: PREDNISOLONE
     Indication: Diffuse large B-cell lymphoma
     Dosage: 2 MG, PER DAY ON CYCLE DAYS 1-15 OF A 21 DAYS LONG CYCLE
     Route: 065
     Dates: end: 20230628
  6. PREDNISOLONE [Suspect]
     Active Substance: PREDNISOLONE
     Dosage: 2 MG, PER DAY ON CYCLE DAYS 1, 4, 8, 15, 22 OF A 21 DAYS LONG CYCLE
     Route: 065
     Dates: start: 20221025, end: 20231110
  7. CHOLECALCIFEROL [Concomitant]
     Active Substance: CHOLECALCIFEROL
     Indication: Product used for unknown indication
     Dosage: UNK
     Route: 065
  8. PANTOPRAZOLE [Concomitant]
     Active Substance: PANTOPRAZOLE
     Indication: Product used for unknown indication
     Route: 065
  9. ALLOPURINOL [Concomitant]
     Active Substance: ALLOPURINOL
     Indication: Product used for unknown indication
     Route: 065

REACTIONS (6)
  - Circulatory collapse [Fatal]
  - Gastrointestinal disorder [Recovering/Resolving]
  - Abdominal pain [Recovering/Resolving]
  - Leukopenia [Not Recovered/Not Resolved]
  - Neutropenia [Not Recovered/Not Resolved]
  - Coronavirus infection [Recovered/Resolved]

NARRATIVE: CASE EVENT DATE: 20230304
